FAERS Safety Report 11326928 (Version 1)
Quarter: 2015Q3

REPORT INFORMATION
  Report Type: Spontaneous
  Country: US (occurrence: None)
  Receive Date: 20150629
  Receipt Date: 20150629
  Transmission Date: 20151125
  Serious: No
  Sender: FDA-Public Use
  Company Number: A-US2014-109436

PATIENT
  Age: 78 Year
  Sex: Female

DRUGS (2)
  1. OPSUMIT [Suspect]
     Active Substance: MACITENTAN
     Indication: PULMONARY ARTERIAL HYPERTENSION
     Route: 048
     Dates: start: 20141029
  2. ADCIRCA [Concomitant]
     Active Substance: TADALAFIL

REACTIONS (10)
  - Oedema peripheral [None]
  - Fluid retention [None]
  - Stress [None]
  - Headache [None]
  - Fatigue [None]
  - Insomnia [None]
  - Eye swelling [None]
  - Dysphonia [None]
  - Hearing impaired [None]
  - Weight increased [None]
